FAERS Safety Report 7118642-1 (Version None)
Quarter: 2010Q4

REPORT INFORMATION
  Report Type: 
  Country: None (occurrence: None)
  Receive Date: 20101027
  Receipt Date: 20100301
  Transmission Date: 20110411
  Serious: Yes (Other)
  Sender: FDA-Public Use
  Company Number: US-WYE-H13928210

PATIENT
  Age: 56 Year
  Sex: Female

DRUGS (1)
  1. PREMARIN [Suspect]
     Indication: VULVOVAGINAL DRYNESS
     Dosage: 2 G 3X PER 1 WK, VAGINAL
     Route: 067
     Dates: start: 20100225

REACTIONS (4)
  - ABDOMINAL PAIN LOWER [None]
  - ADNEXA UTERI PAIN [None]
  - UNEVALUABLE EVENT [None]
  - UTERINE SPASM [None]
